FAERS Safety Report 4757673-3 (Version None)
Quarter: 2005Q3

REPORT INFORMATION
  Report Type: 
  Country: None (occurrence: None)
  Receive Date: 20050831
  Receipt Date: 20050731
  Transmission Date: 20060218
  Serious: Yes (Other)
  Sender: FDA-Public Use
  Company Number: AU-GLAXOSMITHKLINE-B0389840A

PATIENT
  Age: 69 Year
  Sex: Male
  Weight: 75.8 kg

DRUGS (6)
  1. ZYBAN [Suspect]
     Indication: DRUG USE FOR UNKNOWN INDICATION
     Route: 065
  2. COVERSYL PLUS [Concomitant]
     Indication: HYPERTENSION
     Route: 048
     Dates: start: 20050503
  3. DIAMICRON [Concomitant]
     Indication: DIABETES MELLITUS NON-INSULIN-DEPENDENT
     Route: 048
     Dates: start: 20050301, end: 20050301
  4. IMDUR [Concomitant]
     Indication: MYOCARDIAL ISCHAEMIA
     Route: 048
     Dates: start: 20020101
  5. MINIPRESS [Concomitant]
     Indication: HYPERTENSION
     Route: 048
     Dates: start: 20020101
  6. NOTEN [Concomitant]
     Indication: MYOCARDIAL ISCHAEMIA
     Route: 048
     Dates: start: 20020101

REACTIONS (9)
  - ABDOMINAL PAIN [None]
  - BLOOD GLUCOSE INCREASED [None]
  - BLOOD PRESSURE INCREASED [None]
  - DIARRHOEA [None]
  - HALLUCINATION [None]
  - HEADACHE [None]
  - HYPERTENSION [None]
  - IMPAIRED DRIVING ABILITY [None]
  - VOMITING [None]
